FAERS Safety Report 24191416 (Version 5)
Quarter: 2025Q4

REPORT INFORMATION
  Report Type: Report from Study
  Country: JP (occurrence: JP)
  Receive Date: 20240808
  Receipt Date: 20251023
  Transmission Date: 20260117
  Serious: Yes (Life-Threatening, Hospitalization, Other)
  Sender: BRISTOL-MYERS SQUIBB COMPANY
  Company Number: JP-ONO-2024JP012208

PATIENT
  Age: 56 Year
  Sex: Female
  Weight: 56 kg

DRUGS (9)
  1. OPDIVO [Suspect]
     Active Substance: NIVOLUMAB
     Indication: Transitional cell carcinoma
     Dosage: 240 MG
     Dates: start: 20231226, end: 20231226
  2. OPDIVO [Suspect]
     Active Substance: NIVOLUMAB
     Dates: start: 20240110, end: 20240110
  3. OPDIVO [Suspect]
     Active Substance: NIVOLUMAB
     Dates: start: 20240209, end: 20240209
  4. OPDIVO [Suspect]
     Active Substance: NIVOLUMAB
     Dates: start: 20240308, end: 20240308
  5. OPDIVO [Suspect]
     Active Substance: NIVOLUMAB
     Dates: start: 20240405, end: 20240405
  6. OPDIVO [Suspect]
     Active Substance: NIVOLUMAB
     Dates: start: 20240510, end: 20240510
  7. DICLOFENAC SODIUM [Concomitant]
     Active Substance: DICLOFENAC SODIUM
     Indication: Product used for unknown indication
     Dosage: (TAPE (INCLUDING POULTICE))
  8. CRESTOR [Concomitant]
     Active Substance: ROSUVASTATIN CALCIUM
     Indication: Product used for unknown indication
  9. BEPOTASTINE BESILATE [Concomitant]
     Active Substance: BEPOTASTINE BESILATE
     Indication: Product used for unknown indication

REACTIONS (2)
  - Type 1 diabetes mellitus [Recovering/Resolving]
  - Diabetic ketoacidosis [Recovered/Resolved]

NARRATIVE: CASE EVENT DATE: 20240607
